FAERS Safety Report 7415661-2 (Version None)
Quarter: 2011Q2

REPORT INFORMATION
  Report Type: 
  Country: None (occurrence: None)
  Receive Date: 20110407
  Receipt Date: 20110322
  Transmission Date: 20111010
  Serious: Yes (Other)
  Sender: FDA-Public Use
  Company Number: 2011SP012761

PATIENT
  Sex: Male
  Weight: 83 kg

DRUGS (2)
  1. PEGINTERFERON ALFA-2B (PEGINTERFERON ALFA-2B / 01543001/) (150 MCG) [Suspect]
     Indication: PRODUCT USED FOR UNKNOWN INDICATION
     Dosage: 150 MCG, QW; SC
     Route: 058
     Dates: start: 20101217
  2. RIBAVIRIN [Suspect]
     Indication: PRODUCT USED FOR UNKNOWN INDICATION
     Dosage: 1200 MG, QD, PO
     Route: 048
     Dates: start: 20101217

REACTIONS (1)
  - PARKINSON'S DISEASE [None]
